FAERS Safety Report 11959072 (Version 2)
Quarter: 2016Q1

REPORT INFORMATION
  Report Type: Spontaneous
  Country: MX (occurrence: MX)
  Receive Date: 20160126
  Receipt Date: 20160315
  Transmission Date: 20160526
  Serious: Yes (Death, Hospitalization, Other)
  Sender: FDA-Public Use
  Company Number: MX-AMGEN-MEXSL2015138972

PATIENT
  Age: 27 Year
  Sex: Male
  Weight: 65 kg

DRUGS (5)
  1. MORPHINE [Concomitant]
     Active Substance: MORPHINE
     Indication: PAIN
     Dosage: UNK
     Route: 042
     Dates: start: 20151208, end: 20160107
  2. ZYVOXAM [Concomitant]
     Active Substance: LINEZOLID
     Indication: ULCER
     Dosage: UNK
     Dates: start: 20151208, end: 20160107
  3. BLINCYTO [Suspect]
     Active Substance: BLINATUMOMAB
     Indication: ACUTE LYMPHOCYTIC LEUKAEMIA REFRACTORY
     Dosage: 9 MUG, UNK
     Route: 042
     Dates: start: 20151223
  4. LEVOFLOXACIN. [Concomitant]
     Active Substance: LEVOFLOXACIN
     Indication: PROPHYLAXIS
     Dosage: UNK
     Route: 042
     Dates: start: 20151208, end: 20160107
  5. BACTRIM [Concomitant]
     Active Substance: SULFAMETHOXAZOLE\TRIMETHOPRIM
     Indication: PROPHYLAXIS
     Dosage: UNK
     Route: 048
     Dates: start: 20151208

REACTIONS (9)
  - Malnutrition [Unknown]
  - Hypoalbuminaemia [Unknown]
  - Hypovolaemic shock [Fatal]
  - Cytokine release syndrome [Unknown]
  - Hypotension [Unknown]
  - Pleural effusion [Unknown]
  - Headache [Recovered/Resolved]
  - Acute lymphocytic leukaemia recurrent [Unknown]
  - Acute pulmonary oedema [Unknown]

NARRATIVE: CASE EVENT DATE: 20151223
